FAERS Safety Report 9049463 (Version 5)
Quarter: 2014Q3

REPORT INFORMATION
  Report Type: Spontaneous
  Country: CA (occurrence: CA)
  Receive Date: 20130205
  Receipt Date: 20140729
  Transmission Date: 20150326
  Serious: Yes (Other)
  Sender: FDA-Public Use
  Company Number: CA-GLAXOSMITHKLINE-A1010446A

PATIENT
  Sex: Male
  Weight: 107.9 kg

DRUGS (1)
  1. VOTRIENT [Suspect]
     Active Substance: PAZOPANIB HYDROCHLORIDE
     Indication: SARCOMA
     Dosage: 800MG PER DAY
     Route: 065
     Dates: start: 20121012, end: 20140523

REACTIONS (8)
  - Alopecia [Unknown]
  - Skin depigmentation [Unknown]
  - Disease progression [Unknown]
  - Weight increased [Unknown]
  - Albinism [Not Recovered/Not Resolved]
  - Pulmonary mass [Unknown]
  - Mass [Unknown]
  - Hair colour changes [Not Recovered/Not Resolved]
